FAERS Safety Report 7146573-X (Version None)
Quarter: 2010Q4

REPORT INFORMATION
  Report Type: 
  Country: None (occurrence: None)
  Receive Date: 20101208
  Receipt Date: 20101129
  Transmission Date: 20110411
  Serious: Yes (Hospitalization)
  Sender: FDA-Public Use
  Company Number: FR-ABBOTT-10P-056-0688562-00

PATIENT
  Age: 23 Year
  Sex: Female

DRUGS (14)
  1. DEPAKENE [Suspect]
     Indication: STATUS EPILEPTICUS
     Dates: start: 20101007, end: 20101015
  2. RIFADIN [Suspect]
     Indication: TUBERCULOSIS
     Dates: start: 20100913
  3. RIMIFON [Concomitant]
     Indication: PRODUCT USED FOR UNKNOWN INDICATION
     Dates: start: 20100913
  4. MYAMBUTOL [Concomitant]
     Indication: PRODUCT USED FOR UNKNOWN INDICATION
     Dates: start: 20100913
  5. PIRILENE [Concomitant]
     Indication: PRODUCT USED FOR UNKNOWN INDICATION
     Dates: start: 20100913
  6. CORTANCYL [Concomitant]
     Indication: LYMPH NODE TUBERCULOSIS
     Dates: start: 20100913
  7. CORTANCYL [Concomitant]
     Indication: PULMONARY TUBERCULOSIS
  8. CORTANCYL [Concomitant]
     Indication: MENINGITIS TUBERCULOUS
  9. RIVOTRIL [Concomitant]
     Indication: PRODUCT USED FOR UNKNOWN INDICATION
     Dates: start: 20101003, end: 20101005
  10. KEPPRA [Concomitant]
     Indication: PRODUCT USED FOR UNKNOWN INDICATION
     Dates: start: 20101007, end: 20101013
  11. PRODILANTIN [Concomitant]
     Indication: PRODUCT USED FOR UNKNOWN INDICATION
     Dates: start: 20101013
  12. HYDREA [Concomitant]
     Indication: PRODUCT USED FOR UNKNOWN INDICATION
  13. SPECIAFOLDINE [Concomitant]
     Indication: PRODUCT USED FOR UNKNOWN INDICATION
  14. ARANESP [Concomitant]
     Indication: PRODUCT USED FOR UNKNOWN INDICATION

REACTIONS (3)
  - CONVULSION [None]
  - DRUG INEFFECTIVE [None]
  - DRUG LEVEL BELOW THERAPEUTIC [None]
